FAERS Safety Report 5062523-4 (Version None)
Quarter: 2006Q3

REPORT INFORMATION
  Report Type: 
  Country: None (occurrence: None)
  Receive Date: 20060726
  Receipt Date: 20060720
  Transmission Date: 20061208
  Serious: Yes (Hospitalization)
  Sender: FDA-Public Use
  Company Number: 2006SE04033

PATIENT
  Age: 62 Year
  Sex: Male

DRUGS (4)
  1. BLOPRESS [Suspect]
     Indication: HYPERTENSION
     Route: 048
     Dates: end: 20060601
  2. NSAID'S [Suspect]
     Route: 065
     Dates: end: 20060601
  3. DAONIL [Concomitant]
     Route: 048
     Dates: end: 20060601
  4. CONIEL [Concomitant]
     Route: 048
     Dates: end: 20060601

REACTIONS (2)
  - CHOLESTASIS [None]
  - LYMPHOCYTE STIMULATION TEST POSITIVE [None]
